FAERS Safety Report 16628961 (Version 4)
Quarter: 2020Q3

REPORT INFORMATION
  Report Type: Other
  Country: AT (occurrence: AT)
  Receive Date: 20190725
  Receipt Date: 20200806
  Transmission Date: 20201102
  Serious: Yes (Other)
  Sender: FDA-Public Use
  Company Number: AT-ROCHE-2355799

PATIENT
  Age: 25 Year
  Sex: Female
  Weight: 84 kg

DRUGS (1)
  1. OCRELIZUMAB. [Suspect]
     Active Substance: OCRELIZUMAB
     Indication: MULTIPLE SCLEROSIS
     Dosage: FIRST DOSE OF OCRELIZUMAB: 25/FEB/2016
     Route: 042
     Dates: start: 20190307

REACTIONS (1)
  - Neutropenia [Recovered/Resolved]

NARRATIVE: CASE EVENT DATE: 20190708
